FAERS Safety Report 9493556 (Version 1)
Quarter: 2013Q3

REPORT INFORMATION
  Report Type: Spontaneous
  Country: US (occurrence: US)
  Receive Date: 20130902
  Receipt Date: 20130902
  Transmission Date: 20140515
  Serious: No
  Sender: FDA-Public Use
  Company Number: US-PFIZER INC-2013252304

PATIENT
  Age: 13 Year
  Sex: Female
  Weight: 51.7 kg

DRUGS (4)
  1. GEODON [Suspect]
     Indication: BIPOLAR DISORDER
     Dosage: UNK
  2. LITHIUM [Concomitant]
     Dosage: UNK
  3. CLONIDINE [Concomitant]
     Dosage: UNK
  4. VYVANSE [Concomitant]
     Dosage: UNK, 5X/WEEKS

REACTIONS (1)
  - Drug ineffective [Unknown]
